FAERS Safety Report 9768197 (Version 2)
Quarter: 2014Q1

REPORT INFORMATION
  Report Type: Spontaneous
  Country: CN (occurrence: CN)
  Receive Date: 20131217
  Receipt Date: 20140102
  Transmission Date: 20141002
  Serious: Yes (Hospitalization)
  Sender: FDA-Public Use
  Company Number: CN-GLAXOSMITHKLINE-B0953145A

PATIENT
  Age: 44 Year
  Sex: Male
  Weight: 50 kg

DRUGS (2)
  1. HEPTODIN [Suspect]
     Indication: HEPATIC CIRRHOSIS
     Dosage: 1TAB PER DAY
     Route: 048
     Dates: start: 20130903
  2. UNKNOWN INJECTION [Concomitant]
     Indication: HEPATIC CIRRHOSIS

REACTIONS (2)
  - Hepatitis B DNA increased [Not Recovered/Not Resolved]
  - Abdominal distension [Unknown]
